FAERS Safety Report 18066068 (Version 1)
Quarter: 2020Q3

REPORT INFORMATION
  Report Type: Spontaneous
  Country: ZA (occurrence: ZA)
  Receive Date: 20200724
  Receipt Date: 20200724
  Transmission Date: 20201103
  Serious: Yes (Death)
  Sender: FDA-Public Use
  Company Number: ZA-ROCHE-2647329

PATIENT
  Sex: Female
  Weight: 75 kg

DRUGS (16)
  1. ASPIRIN. [Concomitant]
     Active Substance: ASPIRIN
  2. CLOPIDOGREL [Concomitant]
     Active Substance: CLOPIDOGREL BISULFATE
  3. DOBUTAMINE [Concomitant]
     Active Substance: DOBUTAMINE HYDROCHLORIDE
  4. INSULIN [Concomitant]
     Active Substance: INSULIN NOS
  5. PHENYLEPHRINE [Concomitant]
     Active Substance: PHENYLEPHRINE HYDROCHLORIDE
  6. MEROPENEM. [Concomitant]
     Active Substance: MEROPENEM
  7. CASPOFUNGIN [Concomitant]
     Active Substance: CASPOFUNGIN
  8. ACTILYSE [Concomitant]
     Active Substance: ALTEPLASE
  9. FONDAPARINUX [Concomitant]
     Active Substance: FONDAPARINUX
  10. DEXAMETHASONE. [Concomitant]
     Active Substance: DEXAMETHASONE
     Route: 042
  11. PHENYLEPHRINE [Concomitant]
     Active Substance: PHENYLEPHRINE HYDROCHLORIDE
  12. ACTEMRA [Suspect]
     Active Substance: TOCILIZUMAB
     Indication: COVID-19 PNEUMONIA
     Dosage: 2 DOSES 24 HOURS APART
     Route: 042
     Dates: start: 20200701, end: 20200703
  13. ACTEMRA [Suspect]
     Active Substance: TOCILIZUMAB
     Dosage: 2 DOSES 24 HOURS APART
     Route: 042
     Dates: start: 20200701, end: 20200703
  14. DOBUTAMINE [Concomitant]
     Active Substance: DOBUTAMINE HYDROCHLORIDE
  15. CYKLOKAPRON [Concomitant]
     Active Substance: TRANEXAMIC ACID
  16. CUBICIN [Concomitant]
     Active Substance: DAPTOMYCIN

REACTIONS (3)
  - Death [Fatal]
  - Off label use [Unknown]
  - Intentional product use issue [Unknown]
